FAERS Safety Report 12287285 (Version 2)
Quarter: 2016Q2

REPORT INFORMATION
  Report Type: Spontaneous
  Country: US (occurrence: US)
  Receive Date: 20160420
  Receipt Date: 20160518
  Transmission Date: 20160815
  Serious: Yes (Other)
  Sender: FDA-Public Use
  Company Number: US-BAYER-2016-070011

PATIENT
  Age: 30 Year
  Sex: Female

DRUGS (1)
  1. BETASERON [Suspect]
     Active Substance: INTERFERON BETA-1B
     Dosage: UNK

REACTIONS (6)
  - Hyperhidrosis [None]
  - Dizziness [None]
  - Paraesthesia [None]
  - Chest pain [None]
  - Cholelithiasis [None]
  - Dyspnoea [None]

NARRATIVE: CASE EVENT DATE: 2016
